FAERS Safety Report 8607793-8 (Version None)
Quarter: 2012Q3

REPORT INFORMATION
  Report Type: 
  Country: None (occurrence: None)
  Receive Date: 20120821
  Receipt Date: 20120816
  Transmission Date: 20120928
  Serious: Yes (Hospitalization)
  Sender: FDA-Public Use
  Company Number: PHHY2012AU067326

PATIENT
  Sex: Male

DRUGS (7)
  1. CLOZARIL [Suspect]
     Indication: SCHIZOAFFECTIVE DISORDER
     Dosage: 400 MG, UNK
     Route: 048
     Dates: start: 19950123
  2. VALPROATE SODIUM [Concomitant]
     Indication: MOOD ALTERED
     Dosage: 1 G, BID
     Route: 048
  3. ROSUVASTATIN [Concomitant]
     Indication: LIPIDS INCREASED
     Dosage: 10 MG, MANE
     Route: 048
  4. GLICLAZIDE [Concomitant]
     Indication: DIABETES MELLITUS
     Dosage: 60 MG, MANE
  5. PALIPERIDONE [Concomitant]
     Indication: SCHIZOAFFECTIVE DISORDER
     Dosage: 100 MG,(4 WEEKLY)
     Route: 030
     Dates: start: 20120101
  6. METFORMIN HCL [Concomitant]
     Indication: DIABETES MELLITUS
     Dosage: 1 G, BID
     Route: 048
  7. LEVOTHYROXINE SODIUM [Concomitant]
     Indication: HYPOTHYROIDISM
     Dosage: 75 UG, UNK

REACTIONS (5)
  - SKIN INFECTION [None]
  - CELLULITIS [None]
  - C-REACTIVE PROTEIN INCREASED [None]
  - OBESITY [None]
  - ANTIPSYCHOTIC DRUG LEVEL INCREASED [None]
